FAERS Safety Report 17875983 (Version 1)
Quarter: 2020Q2

REPORT INFORMATION
  Report Type: Spontaneous
  Country: NO (occurrence: NO)
  Receive Date: 20200609
  Receipt Date: 20200609
  Transmission Date: 20200714
  Serious: Yes (Other)
  Sender: FDA-Public Use
  Company Number: NO-JNJFOC-20200602340

PATIENT
  Age: 32 Year
  Sex: Female

DRUGS (3)
  1. NEXIUM [Suspect]
     Active Substance: ESOMEPRAZOLE MAGNESIUM
     Indication: OESOPHAGITIS
     Dosage: A02BC05 - ESOMEPRAZOL,ESOMEPRAZOL: 20MG;
     Route: 065
     Dates: start: 20191119, end: 20191201
  2. SOMAC [Suspect]
     Active Substance: PANTOPRAZOLE SODIUM
     Indication: OESOPHAGITIS
     Dosage: A02BC02 - PANTOPRAZOL,PANTOPRAZOL: 20MG
     Route: 065
     Dates: start: 20200210, end: 20200427
  3. PEPCID [Suspect]
     Active Substance: FAMOTIDINE
     Indication: OESOPHAGITIS
     Dosage: 1 TABLET UP TO 3 TIMES DAILY,  A02BA03 - FAMOTIDIN,FAMOTIDIN: 10MG;
     Route: 065
     Dates: start: 20200427, end: 20200512

REACTIONS (4)
  - Exercise tolerance decreased [Recovering/Resolving]
  - Asthenia [Recovering/Resolving]
  - Pain in extremity [Recovering/Resolving]
  - Paraesthesia [Recovering/Resolving]
